FAERS Safety Report 7003437-X (Version None)
Quarter: 2010Q3

REPORT INFORMATION
  Report Type: 
  Country: None (occurrence: None)
  Receive Date: 20100920
  Receipt Date: 20100910
  Transmission Date: 20110219
  Serious: Yes (Other)
  Sender: FDA-Public Use
  Company Number: US-PFIZER INC-2010101748

PATIENT
  Sex: Female
  Weight: 43 kg

DRUGS (3)
  1. DEPO-PROVERA [Suspect]
     Indication: CONTRACEPTION
     Dosage: FIRST INJECTION
     Route: 030
     Dates: start: 20070718
  2. DEPO-PROVERA [Suspect]
     Dosage: UNK
     Route: 030
     Dates: start: 20100412
  3. DEPO-PROVERA [Suspect]
     Dosage: UNK
     Route: 030
     Dates: start: 20100705

REACTIONS (2)
  - DRUG INEFFECTIVE [None]
  - UNINTENDED PREGNANCY [None]
